FAERS Safety Report 8160261-2 (Version None)
Quarter: 2012Q1

REPORT INFORMATION
  Report Type: 
  Country: None (occurrence: None)
  Receive Date: 20120223
  Receipt Date: 20120223
  Transmission Date: 20120608
  Serious: Yes (Life-Threatening)
  Sender: FDA-Public Use
  Company Number: None

PATIENT
  Age: 69 Year
  Sex: Female
  Weight: 54.431 kg

DRUGS (2)
  1. CALCIUM SUPPLEMENT. [Concomitant]
  2. BONIVA [Suspect]
     Indication: OESOPHAGEAL CARCINOMA
     Dates: start: 20060113, end: 20120113

REACTIONS (1)
  - OESOPHAGEAL CARCINOMA [None]
